FAERS Safety Report 10973977 (Version 1)
Quarter: 2015Q1

REPORT INFORMATION
  Report Type: Spontaneous
  Country: US (occurrence: None)
  Receive Date: 20150331
  Receipt Date: 20150331
  Transmission Date: 20150721
  Serious: Yes (Hospitalization)
  Sender: FDA-Public Use
  Company Number: None

PATIENT
  Age: 63 Year
  Sex: Female

DRUGS (1)
  1. AFINITOR [Suspect]
     Active Substance: EVEROLIMUS
     Indication: PLASMA CELL MYELOMA
     Dosage: 1 TABLET (10 MG)
     Route: 048
     Dates: start: 20150212

REACTIONS (3)
  - Device related infection [None]
  - Nasopharyngitis [None]
  - General physical health deterioration [None]

NARRATIVE: CASE EVENT DATE: 20150323
